FAERS Safety Report 13999251 (Version 1)
Quarter: 2017Q3

REPORT INFORMATION
  Report Type: Spontaneous
  Country: US (occurrence: US)
  Receive Date: 20170922
  Receipt Date: 20170922
  Transmission Date: 20171128
  Serious: Yes (Hospitalization, Other)
  Sender: FDA-Public Use
  Company Number: US-TORRENT-00003411

PATIENT
  Age: 32 Year
  Sex: Male

DRUGS (7)
  1. PANTOPRAZOLE/PANTOPRAZOLE SODIUM [Suspect]
     Active Substance: PANTOPRAZOLE SODIUM
  2. DEXTROSE. [Concomitant]
     Active Substance: DEXTROSE
  3. CALCIUM CARBONATE. [Interacting]
     Active Substance: CALCIUM CARBONATE
  4. CALCITRIOL. [Concomitant]
     Active Substance: CALCITRIOL
  5. CALCIUM GLUCONATE. [Concomitant]
     Active Substance: CALCIUM GLUCONATE
  6. DEXTROSE. [Concomitant]
     Active Substance: DEXTROSE
  7. CALCIUM ACETATE. [Concomitant]
     Active Substance: CALCIUM ACETATE

REACTIONS (2)
  - Drug interaction [Unknown]
  - Hypocalcaemia [Unknown]
